FAERS Safety Report 5177346-5 (Version None)
Quarter: 2006Q4

REPORT INFORMATION
  Report Type: 
  Country: None (occurrence: None)
  Receive Date: 20061218
  Receipt Date: 20061110
  Transmission Date: 20070319
  Serious: Yes (Hospitalization, Other)
  Sender: FDA-Public Use
  Company Number: PHBS2006JP17707

PATIENT
  Age: 68 Year
  Sex: Male
  Weight: 55 kg

DRUGS (10)
  1. LIORESAL [Suspect]
     Indication: CONVULSION
     Dosage: 5 MG/DAY
     Route: 048
     Dates: start: 20061027, end: 20061029
  2. DIALYSIS [Concomitant]
     Dates: start: 19990801
  3. CALCIUM CARBONATE [Concomitant]
     Indication: HYPERPHOSPHATAEMIA
     Dosage: 3000 MG/DAY
     Route: 048
  4. SELECTOL [Concomitant]
     Indication: HYPERTENSION
     Dosage: 100 MG/DAY
     Route: 048
  5. LASIX [Concomitant]
     Indication: RENAL FAILURE CHRONIC
     Dosage: 40 MG/DAY
     Route: 048
  6. DIOVAN [Concomitant]
     Indication: HYPERTENSION
     Dosage: 80 MG/DAY
     Route: 048
  7. CARDENALIN [Concomitant]
     Indication: HYPERTENSION
     Dosage: 2 MG/DAY
     Route: 048
  8. NORVASC [Concomitant]
     Indication: HYPERTENSION
     Dosage: 10 MG/DAY
     Route: 048
  9. OPALMON [Concomitant]
     Indication: VASCULAR INSUFFICIENCY
     Dosage: 30 UG/DAY
     Route: 048
  10. CYANOCOBALAMIN [Concomitant]
     Indication: NERVE INJURY
     Dosage: 750 MG/DAY
     Route: 048

REACTIONS (5)
  - CONCOMITANT DISEASE AGGRAVATED [None]
  - DRUG INEFFECTIVE [None]
  - HYPOAESTHESIA [None]
  - MUSCULAR WEAKNESS [None]
  - SPINAL OSTEOARTHRITIS [None]
